FAERS Safety Report 6081715-9 (Version None)
Quarter: 2009Q1

REPORT INFORMATION
  Report Type: 
  Country: None (occurrence: None)
  Receive Date: 20090218
  Receipt Date: 20090216
  Transmission Date: 20090719
  Serious: Yes (Other)
  Sender: FDA-Public Use
  Company Number: US-BAYER-200814725BCC

PATIENT
  Age: 79 Year
  Sex: Female
  Weight: 69 kg

DRUGS (17)
  1. ALEVE (CAPLET) [Suspect]
     Indication: PAIN
     Dosage: TOTAL DAILY DOSE: 440 MG  UNIT DOSE: 220 MG
     Route: 048
     Dates: end: 20081028
  2. ALEVE (CAPLET) [Suspect]
     Dosage: TOTAL DAILY DOSE: 440 MG  UNIT DOSE: 220 MG
     Route: 048
     Dates: start: 20081101
  3. FOSAMAX [Concomitant]
  4. FUROSEMIDE [Concomitant]
     Dosage: TOTAL DAILY DOSE: 20 MG
  5. GLUCOSAMINE CHONDROTIN [Concomitant]
  6. SAM'S CLUB CALCIUM PLUS D [Concomitant]
  7. SAM'S CLUB MULTIVITAMIN [Concomitant]
  8. ASCORBIC ACID [Concomitant]
  9. VITAMIN B-12 [Concomitant]
  10. OCUVITE PRESERVISION AREDS [Concomitant]
     Dosage: TOTAL DAILY DOSE: 2 DF
  11. SAM'S CLUB IRON SUPPLEMENT [Concomitant]
     Dosage: TOTAL DAILY DOSE: 50 MG
  12. PREVACID [Concomitant]
     Dosage: TOTAL DAILY DOSE: 60 MG  UNIT DOSE: 30 MG
  13. LEVOTHYROXINE SODIUM [Concomitant]
     Dosage: TOTAL DAILY DOSE: 0.100 MG
  14. COZAAR [Concomitant]
     Dosage: TOTAL DAILY DOSE: 100 MG
  15. VALTREX [Concomitant]
     Dosage: TOTAL DAILY DOSE: 500 MG
  16. VERAPAMIL EXTENDED-RELEASE [Concomitant]
     Dosage: TOTAL DAILY DOSE: 240 MG
  17. CRESTOR [Concomitant]
     Dosage: TOTAL DAILY DOSE: 5 MG

REACTIONS (3)
  - DYSPEPSIA [None]
  - GASTRIC ULCER [None]
  - GASTROOESOPHAGEAL REFLUX DISEASE [None]
